FAERS Safety Report 23863763 (Version 1)
Quarter: 2024Q2

REPORT INFORMATION
  Report Type: Spontaneous
  Country: US (occurrence: US)
  Receive Date: 20240516
  Receipt Date: 20240516
  Transmission Date: 20240716
  Serious: No
  Sender: FDA-Public Use
  Company Number: US-BRISTOL-MYERS SQUIBB COMPANY-2024-075021

PATIENT
  Age: 70 Year
  Sex: Female

DRUGS (1)
  1. SOTYKTU [Suspect]
     Active Substance: DEUCRAVACITINIB
     Indication: Psoriasis
     Route: 048
     Dates: start: 20230401

REACTIONS (7)
  - Acne [Unknown]
  - Product dose omission issue [Unknown]
  - Oral pain [Unknown]
  - Headache [Unknown]
  - Cough [Unknown]
  - Nasopharyngitis [Unknown]
  - Skin atrophy [Unknown]
